FAERS Safety Report 11888558 (Version 1)
Quarter: 2016Q1

REPORT INFORMATION
  Report Type: Spontaneous
  Country: US (occurrence: None)
  Receive Date: 20160104
  Receipt Date: 20160104
  Transmission Date: 20160526
  Serious: No
  Sender: FDA-Public Use
  Company Number: None

PATIENT
  Age: 64 Year
  Sex: Female

DRUGS (4)
  1. SERTRALINE HCL [Suspect]
     Active Substance: SERTRALINE HYDROCHLORIDE
     Indication: ANXIETY
     Dosage: 1
     Route: 048
     Dates: start: 20151127, end: 20151209
  2. TIMOLOL MALEATE. [Concomitant]
     Active Substance: TIMOLOL MALEATE
  3. ALPRAZOLAM. [Suspect]
     Active Substance: ALPRAZOLAM
     Indication: ANXIETY
     Dosage: 8 HOURS AS NEEDED
     Route: 048
     Dates: start: 20151123, end: 20151213
  4. NATURE MADE DAILY VITAMIN [Concomitant]

REACTIONS (12)
  - Feeling jittery [None]
  - Feeling abnormal [None]
  - Fatigue [None]
  - Headache [None]
  - Drug effect decreased [None]
  - Dry eye [None]
  - Tinnitus [None]
  - Insomnia [None]
  - Withdrawal syndrome [None]
  - Nausea [None]
  - Drug ineffective [None]
  - Dependence [None]

NARRATIVE: CASE EVENT DATE: 20151123
